FAERS Safety Report 7521486-X (Version None)
Quarter: 2011Q2

REPORT INFORMATION
  Report Type: 
  Country: None (occurrence: None)
  Receive Date: 20110603
  Receipt Date: 20110406
  Transmission Date: 20111010
  Serious: Yes (Other)
  Sender: FDA-Public Use
  Company Number: US-BAYER-201041422NA

PATIENT
  Sex: Female
  Weight: 77.098 kg

DRUGS (6)
  1. DROSPIRENONE AND ETHINYL ESTRADIOL [Suspect]
     Indication: ACNE
     Dosage: UNK
     Dates: start: 20020101, end: 20090101
  2. NAPROXEN (ALEVE) [Concomitant]
  3. ACETAMINOPHEN [Concomitant]
  4. SUDAFED 12 HOUR [Concomitant]
  5. YAZ [Suspect]
     Indication: ACNE
     Dosage: UNK
     Dates: start: 20020101, end: 20090101
  6. YASMIN [Suspect]
     Indication: ACNE
     Dosage: UNK
     Dates: start: 20020101, end: 20090101

REACTIONS (6)
  - CHOLECYSTITIS [None]
  - NAUSEA [None]
  - MUSCULOSKELETAL PAIN [None]
  - GALLBLADDER DISORDER [None]
  - INJURY [None]
  - DISCOMFORT [None]
